FAERS Safety Report 8491185-9 (Version None)
Quarter: 2012Q3

REPORT INFORMATION
  Report Type: 
  Country: None (occurrence: None)
  Receive Date: 20120706
  Receipt Date: 20120626
  Transmission Date: 20120928
  Serious: Yes (Other)
  Sender: FDA-Public Use
  Company Number: CA-JNJFOC-20120613343

PATIENT
  Sex: Female
  Weight: 74 kg

DRUGS (3)
  1. REMICADE [Suspect]
     Route: 042
     Dates: start: 20120501
  2. TYLENOL W/ CODEINE NO. 3 [Concomitant]
     Route: 065
  3. REMICADE [Suspect]
     Indication: CROHN'S DISEASE
     Route: 042
     Dates: start: 20120320

REACTIONS (5)
  - HAEMATOCHEZIA [None]
  - VOMITING [None]
  - DIARRHOEA [None]
  - MUSCLE SPASMS [None]
  - ARTHRALGIA [None]
